FAERS Safety Report 6351027-4 (Version None)
Quarter: 2009Q3

REPORT INFORMATION
  Report Type: 
  Country: None (occurrence: None)
  Receive Date: 20090912
  Receipt Date: 20090622
  Transmission Date: 20100115
  Serious: No
  Sender: FDA-Public Use
  Company Number: US-ABBOTT-07P-163-0372956-00

PATIENT
  Sex: Female
  Weight: 72.64 kg

DRUGS (10)
  1. HUMIRA [Suspect]
     Indication: ANKYLOSING SPONDYLITIS
     Route: 058
     Dates: start: 20070501
  2. GABAPENTIN [Concomitant]
     Indication: BIPOLAR DISORDER
     Route: 048
  3. PREDNISONE [Concomitant]
     Indication: ANKYLOSING SPONDYLITIS
     Route: 048
  4. PANTOPRAZOLE SODIUM [Concomitant]
     Indication: CROHN'S DISEASE
     Route: 048
  5. METHADONE [Concomitant]
     Indication: PAIN
     Route: 048
  6. VICODIN [Concomitant]
     Indication: PAIN
     Dosage: 10/325MG
     Route: 048
  7. DIAZEPAM [Concomitant]
     Indication: BIPOLAR DISORDER
     Route: 048
  8. ZIPRASIDONE HYDROCHLORIDE [Concomitant]
     Indication: BIPOLAR DISORDER
     Dosage: 10MG UP TO 20MG
     Route: 048
  9. MONTELUKAST [Concomitant]
     Indication: HYPERSENSITIVITY
     Route: 048
  10. AMITRIPTYLINE [Concomitant]
     Indication: DRUG USE FOR UNKNOWN INDICATION
     Route: 048

REACTIONS (1)
  - INCORRECT DOSE ADMINISTERED [None]
